FAERS Safety Report 23278704 (Version 1)
Quarter: 2023Q4

REPORT INFORMATION
  Report Type: Report from Study
  Country: US (occurrence: US)
  Receive Date: 20231208
  Receipt Date: 20231208
  Transmission Date: 20240110
  Serious: Yes (Hospitalization)
  Sender: FDA-Public Use
  Company Number: US-ABBVIE-5525895

PATIENT
  Sex: Male
  Weight: 86 kg

DRUGS (1)
  1. HUMIRA [Suspect]
     Active Substance: ADALIMUMAB
     Indication: Crohn^s disease
     Dosage: FORM STRENGTH: 40MG?FREQUENCY TEXT: UNKNOWN
     Route: 058
     Dates: start: 2020

REACTIONS (3)
  - Blood magnesium decreased [Recovering/Resolving]
  - Drug specific antibody present [Recovering/Resolving]
  - Blood potassium decreased [Recovering/Resolving]
